FAERS Safety Report 24186760 (Version 2)
Quarter: 2024Q3

REPORT INFORMATION
  Report Type: Spontaneous
  Country: US (occurrence: US)
  Receive Date: 20240808
  Receipt Date: 20240830
  Transmission Date: 20241017
  Serious: Yes (Other)
  Sender: REGENERON
  Company Number: US-REGENERON PHARMACEUTICALS, INC.-2024-106278

PATIENT
  Sex: Male

DRUGS (4)
  1. EYLEA [Suspect]
     Active Substance: AFLIBERCEPT
     Indication: Diabetic retinopathy
     Dosage: 2 MG EVERY 5-6 WEEKS; BOTHE EYES; FORMULATION: UNKNOWN
     Route: 031
     Dates: start: 202306
  2. EYLEA [Suspect]
     Active Substance: AFLIBERCEPT
     Indication: Diabetic retinal oedema
  3. METFORMIN [Concomitant]
     Active Substance: METFORMIN HYDROCHLORIDE
     Indication: Product used for unknown indication
  4. GLIPIZIDE [Concomitant]
     Active Substance: GLIPIZIDE
     Indication: Product used for unknown indication

REACTIONS (8)
  - Blindness transient [Recovered/Resolved]
  - Blood glucose increased [Unknown]
  - Somnolence [Unknown]
  - Visual acuity reduced [Unknown]
  - Ocular discomfort [Unknown]
  - Eye pain [Recovering/Resolving]
  - Vitreous floaters [Not Recovered/Not Resolved]
  - Vision blurred [Recovered/Resolved]

NARRATIVE: CASE EVENT DATE: 20240101
